FAERS Safety Report 25665916 (Version 1)
Quarter: 2025Q3

REPORT INFORMATION
  Report Type: Spontaneous
  Country: US (occurrence: EU)
  Receive Date: 20250811
  Receipt Date: 20250811
  Transmission Date: 20251021
  Serious: Yes (Hospitalization)
  Sender: NOVO NORDISK
  Company Number: US-NOVOPROD-1365492

PATIENT
  Age: 54 Year
  Sex: Female
  Weight: 135.9 kg

DRUGS (5)
  1. OZEMPIC [Suspect]
     Active Substance: SEMAGLUTIDE
     Indication: Type 2 diabetes mellitus
     Dosage: 0.25 MG, ONCE PER WEEK
     Route: 058
     Dates: start: 20230328, end: 20230425
  2. OZEMPIC [Suspect]
     Active Substance: SEMAGLUTIDE
     Dosage: 0.25 MG, ONCE PER WEEK
     Dates: start: 20230404, end: 20230425
  3. OZEMPIC [Suspect]
     Active Substance: SEMAGLUTIDE
     Dosage: 0.5 MG, ONCE PER WEEK
     Route: 058
     Dates: start: 20230425
  4. SULODEXIDE [Concomitant]
     Active Substance: SULODEXIDE
     Indication: Varicose vein
     Dates: start: 2018
  5. METFORMIN [Concomitant]
     Active Substance: METFORMIN HYDROCHLORIDE
     Route: 048
     Dates: start: 20220429

REACTIONS (1)
  - Uterine polyp [Recovered/Resolved]

NARRATIVE: CASE EVENT DATE: 20241215
